FAERS Safety Report 7889245-6 (Version None)
Quarter: 2011Q4

REPORT INFORMATION
  Report Type: 
  Country: None (occurrence: None)
  Receive Date: 20111103
  Receipt Date: 20100211
  Transmission Date: 20120403
  Serious: Yes (Death, Hospitalization, Other)
  Sender: FDA-Public Use
  Company Number: IE-MERCK-0911GBR00092

PATIENT
  Age: 71 Year
  Sex: Female

DRUGS (2)
  1. JANUMET [Suspect]
     Indication: TYPE 2 DIABETES MELLITUS
     Route: 048
     Dates: start: 20081101, end: 20081226
  2. METFORMIN HYDROCHLORIDE AND ROSIGLITAZONE MALEATE [Concomitant]
     Indication: BLOOD GLUCOSE ABNORMAL
     Route: 065
     Dates: end: 20081101

REACTIONS (5)
  - RENAL FAILURE [None]
  - GASTRIC DISORDER [None]
  - LACTIC ACIDOSIS [None]
  - BACK PAIN [None]
  - CEREBRAL HAEMORRHAGE [None]
